FAERS Safety Report 12339877 (Version 1)
Quarter: 2016Q2

REPORT INFORMATION
  Report Type: Spontaneous
  Country: US (occurrence: US)
  Receive Date: 20160506
  Receipt Date: 20160506
  Transmission Date: 20160815
  Serious: Yes (Other)
  Sender: FDA-Public Use
  Company Number: US-BEH-2016061977

PATIENT
  Sex: Female
  Weight: 81 kg

DRUGS (22)
  1. ACETAMINOPHEN. [Concomitant]
     Active Substance: ACETAMINOPHEN
  2. FLUBLOK [Concomitant]
     Active Substance: INFLUENZA A VIRUS A/CALIFORNIA/7/2009 (H1N1) RECOMBINANT HEMAGGLUTININ ANTIGEN\INFLUENZA A VIRUS A/VICTORIA/361/2011 (H3N2) RECOMBINANT HEMAGGLUTININ ANTIGEN\INFLUENZA B VIRUS B/WISCONSIN/1/2010 RECOMBINANT HEMAGGLUTININ ANTIGEN
  3. PRILOCAINE [Concomitant]
     Active Substance: PRILOCAINE
  4. DOXYCYCLINE. [Concomitant]
     Active Substance: DOXYCYCLINE
  5. ESTRADIOL. [Concomitant]
     Active Substance: ESTRADIOL
  6. IBUPROFEN. [Concomitant]
     Active Substance: IBUPROFEN
  7. EPIPEN [Concomitant]
     Active Substance: EPINEPHRINE
  8. ASPIRIN. [Concomitant]
     Active Substance: ASPIRIN
  9. VITAMIN D [Concomitant]
     Active Substance: CHOLECALCIFEROL
  10. ZOLOFT [Concomitant]
     Active Substance: SERTRALINE HYDROCHLORIDE
  11. ZYRTEC [Concomitant]
     Active Substance: CETIRIZINE HYDROCHLORIDE
  12. OMEPRAZOLE. [Concomitant]
     Active Substance: OMEPRAZOLE
  13. VIVELLE [Concomitant]
     Active Substance: ESTRADIOL
  14. LEVOTHYROXINE. [Concomitant]
     Active Substance: LEVOTHYROXINE
  15. DIPHENHYDRAMINE. [Concomitant]
     Active Substance: DIPHENHYDRAMINE
  16. ALBUTEROL. [Concomitant]
     Active Substance: ALBUTEROL
  17. LIDOCAINE. [Concomitant]
     Active Substance: LIDOCAINE
  18. DULERA [Concomitant]
     Active Substance: FORMOTEROL FUMARATE DIHYDRATE\MOMETASONE FUROATE
  19. HIZENTRA [Suspect]
     Active Substance: HUMAN IMMUNOGLOBULIN G
     Indication: IMMUNODEFICIENCY COMMON VARIABLE
     Route: 058
     Dates: start: 20150728
  20. PRAVASTATIN [Concomitant]
     Active Substance: PRAVASTATIN\PRAVASTATIN SODIUM
  21. XOLAIR [Concomitant]
     Active Substance: OMALIZUMAB
  22. PROAIR HFA [Concomitant]
     Active Substance: ALBUTEROL SULFATE

REACTIONS (1)
  - Microsurgery to hand [Unknown]
